FAERS Safety Report 20232063 (Version 1)
Quarter: 2021Q4

REPORT INFORMATION
  Report Type: Spontaneous
  Country: US (occurrence: US)
  Receive Date: 20211227
  Receipt Date: 20211227
  Transmission Date: 20220303
  Serious: Yes (Hospitalization, Other)
  Sender: FDA-Public Use
  Company Number: US-BROWN + BURK(UK) LIMITED-ML2021-03869

PATIENT
  Age: 54 Year
  Sex: Female

DRUGS (12)
  1. DALFAMPRIDINE [Suspect]
     Active Substance: DALFAMPRIDINE
     Indication: Peroneal nerve palsy
     Dosage: 10 MILLIGRAM, BID, ORAL
     Route: 048
     Dates: start: 2020
  2. DALFAMPRIDINE [Suspect]
     Active Substance: DALFAMPRIDINE
     Dosage: UNK, ORAL
     Route: 048
  3. DALFAMPRIDINE [Suspect]
     Active Substance: DALFAMPRIDINE
  4. DALFAMPRIDINE [Suspect]
     Active Substance: DALFAMPRIDINE
  5. AMPYRA [Suspect]
     Active Substance: DALFAMPRIDINE
     Indication: Gait disturbance
     Dosage: 10 MILLIGRAM, BID, ORAL
     Route: 048
  6. AMPYRA [Suspect]
     Active Substance: DALFAMPRIDINE
  7. TYSABRI [Suspect]
     Active Substance: NATALIZUMAB
     Indication: Relapsing-remitting multiple sclerosis
     Dosage: CONCENTRATE FOR SOLUTION FOR INFUSION, 300 MILLIGRAM, 1 IN 4 WEEKS, INTRAVENOUS (NOT OTHERWISE SPECI
     Route: 042
     Dates: start: 2017
  8. TYSABRI [Suspect]
     Active Substance: NATALIZUMAB
     Dosage: INFUSED OVER 1 HOUR, INTRAVENOUS (NOT OTHERWISE SPECIFIED)
     Dates: start: 20180214
  9. HUMAN IMMUNOGLOBULIN G [Suspect]
     Active Substance: HUMAN IMMUNOGLOBULIN G
     Indication: Product used for unknown indication
     Dosage: UNK, LNTRAVENOUS (NOT OTHERWISE SPECIFIED)
     Route: 042
  10. BACLOFEN [Concomitant]
     Active Substance: BACLOFEN
  11. ACTHAR [Concomitant]
     Active Substance: CORTICOTROPIN
  12. CRESTOR [Concomitant]
     Active Substance: ROSUVASTATIN CALCIUM

REACTIONS (3)
  - COVID-19 [Recovering/Resolving]
  - Pulmonary embolism [Recovering/Resolving]
  - Deep vein thrombosis [Recovering/Resolving]

NARRATIVE: CASE EVENT DATE: 20210701
